FAERS Safety Report 24613865 (Version 1)
Quarter: 2024Q4

REPORT INFORMATION
  Report Type: Spontaneous
  Country: TH (occurrence: TH)
  Receive Date: 20241113
  Receipt Date: 20241113
  Transmission Date: 20250115
  Serious: Yes (Other)
  Sender: BRACCO
  Company Number: TH-BRACCO-2024TH07152

PATIENT
  Age: 32 Year
  Sex: Male

DRUGS (1)
  1. IOPAMIRO [Suspect]
     Active Substance: IOPAMIDOL
     Indication: Computerised tomogram
     Dosage: 70 ML, SINGLE
     Route: 042
     Dates: start: 20241108, end: 20241108

REACTIONS (1)
  - Syncope [Recovered/Resolved]

NARRATIVE: CASE EVENT DATE: 20241108
